FAERS Safety Report 21969436 (Version 2)
Quarter: 2023Q2

REPORT INFORMATION
  Report Type: Spontaneous
  Country: JP (occurrence: JP)
  Receive Date: 20230208
  Receipt Date: 20230425
  Transmission Date: 20230722
  Serious: Yes (Hospitalization, Other)
  Sender: FDA-Public Use
  Company Number: JP-ELI_LILLY_AND_COMPANY-JP202302000054

PATIENT
  Age: 73 Year
  Sex: Male

DRUGS (4)
  1. OLUMIANT [Suspect]
     Active Substance: BARICITINIB
     Indication: Rheumatoid arthritis
     Dosage: 4 MG, DAILY
     Route: 048
     Dates: start: 20220826, end: 20221210
  2. OLUMIANT [Suspect]
     Active Substance: BARICITINIB
     Dosage: 2 MG, DAILY
     Route: 048
     Dates: start: 20230106
  3. PREDONINE [Concomitant]
     Active Substance: PREDNISOLONE
     Dosage: 2 MG
     Dates: start: 20210430, end: 20221220
  4. IGURATIMOD [Concomitant]
     Active Substance: IGURATIMOD
     Dosage: 50 MG
     Dates: start: 20180620, end: 20221210

REACTIONS (2)
  - Streptococcal sepsis [Recovered/Resolved]
  - Tooth infection [Unknown]

NARRATIVE: CASE EVENT DATE: 20221203
